FAERS Safety Report 16310296 (Version 1)
Quarter: 2019Q2

REPORT INFORMATION
  Report Type: Spontaneous
  Country: US (occurrence: US)
  Receive Date: 20190514
  Receipt Date: 20190514
  Transmission Date: 20190711
  Serious: No
  Sender: FDA-Public Use
  Company Number: US-SUNOVION-2019SUN001982

PATIENT
  Age: 50 Year
  Sex: Male

DRUGS (3)
  1. APTIOM [Suspect]
     Active Substance: ESLICARBAZEPINE ACETATE
     Dosage: 400 MG, QD
     Route: 048
  2. DEPAKOTE [Concomitant]
     Active Substance: DIVALPROEX SODIUM
     Dosage: 1500 UNK, BID
  3. DILANTIN [Concomitant]
     Active Substance: PHENYTOIN
     Dosage: 300 MG, QD

REACTIONS (3)
  - Vision blurred [Unknown]
  - Visual impairment [Unknown]
  - Communication disorder [Unknown]
